FAERS Safety Report 6763332-8 (Version None)
Quarter: 2010Q2

REPORT INFORMATION
  Report Type: 
  Country: None (occurrence: None)
  Receive Date: 20100610
  Receipt Date: 20100420
  Transmission Date: 20101027
  Serious: Yes (Life-Threatening, Hospitalization, Other)
  Sender: FDA-Public Use
  Company Number: US-BAYER-200928635NA

PATIENT
  Age: 39 Year
  Sex: Female
  Weight: 96 kg

DRUGS (6)
  1. YASMIN [Suspect]
     Indication: DRUG USE FOR UNKNOWN INDICATION
     Route: 048
     Dates: start: 20020601, end: 20080727
  2. YAZ [Suspect]
     Indication: DRUG USE FOR UNKNOWN INDICATION
  3. INDERAL [Concomitant]
     Dosage: UNIT DOSE: 60 MG
  4. DARVOCET-N 100 [Concomitant]
     Indication: PAIN
     Dosage: AS NEEDED PAIN
  5. DARVOCET-N 100 [Concomitant]
     Dosage: DARVOCET-N 100. ONE PO Q 4 HOURS PRN PAIN
  6. XANAX [Concomitant]
     Indication: ANXIETY
     Dosage: TOTAL DAILY DOSE: 0.5 MG  UNIT DOSE: 0.5 MG
     Route: 048
     Dates: start: 20080701

REACTIONS (3)
  - DEEP VEIN THROMBOSIS [None]
  - OEDEMA PERIPHERAL [None]
  - PAIN IN EXTREMITY [None]
